FAERS Safety Report 10011007 (Version 2)
Quarter: 2014Q1

REPORT INFORMATION
  Report Type: Spontaneous
  Country: US (occurrence: US)
  Receive Date: 20140314
  Receipt Date: 20140314
  Transmission Date: 20141002
  Serious: No
  Sender: FDA-Public Use
  Company Number: US-DRREDDYS-USA/USA/13/0027884

PATIENT
  Age: 72 Year
  Sex: Male
  Weight: 135.1 kg

DRUGS (2)
  1. CETIRIZINE 10 MG [Suspect]
     Indication: HYPERSENSITIVITY
     Dosage: 10 MG TWICE DAILY
     Route: 065
     Dates: start: 20130203
  2. DEXTROMETHORPHAN [Suspect]
     Indication: PRODUCT USED FOR UNKNOWN INDICATION
     Route: 065

REACTIONS (2)
  - Constipation [Recovered/Resolved]
  - Product quality issue [Unknown]
